FAERS Safety Report 18277009 (Version 1)
Quarter: 2020Q3

REPORT INFORMATION
  Report Type: Spontaneous
  Country: US (occurrence: US)
  Receive Date: 20200916
  Receipt Date: 20200916
  Transmission Date: 20201103
  Serious: No
  Sender: FDA-Public Use
  Company Number: None

PATIENT
  Age: 95 Year
  Sex: Female
  Weight: 49.5 kg

DRUGS (3)
  1. DICLOFENAC SODIUM GEL [Suspect]
     Active Substance: DICLOFENAC SODIUM
     Indication: INTERVERTEBRAL DISC PROTRUSION
     Dosage: ?          OTHER STRENGTH:MG/G;QUANTITY:1 GRAM;?
     Route: 061
  2. SIMVASTATIN. [Concomitant]
     Active Substance: SIMVASTATIN
  3. KLONOPIN [Concomitant]
     Active Substance: CLONAZEPAM

REACTIONS (1)
  - Dysarthria [None]

NARRATIVE: CASE EVENT DATE: 20200914
